FAERS Safety Report 7074518-X (Version None)
Quarter: 2010Q4

REPORT INFORMATION
  Report Type: 
  Country: None (occurrence: None)
  Receive Date: 20101029
  Receipt Date: 20101022
  Transmission Date: 20110411
  Serious: Yes (Hospitalization)
  Sender: FDA-Public Use
  Company Number: US-US-EMD SERONO, INC.-231185J08USA

PATIENT
  Sex: Female

DRUGS (4)
  1. REBIF [Suspect]
     Indication: MULTIPLE SCLEROSIS
     Route: 058
     Dates: start: 20050601, end: 20080229
  2. REBIF [Suspect]
     Route: 058
     Dates: start: 20090716, end: 20100629
  3. REBIF [Suspect]
     Route: 058
     Dates: start: 20100818, end: 20100901
  4. REBIF [Suspect]
     Route: 058
     Dates: start: 20100901

REACTIONS (12)
  - ANXIETY [None]
  - BIPOLAR DISORDER [None]
  - COGNITIVE DISORDER [None]
  - DEPRESSION [None]
  - DIZZINESS [None]
  - FATIGUE [None]
  - HEADACHE [None]
  - INJECTION SITE ERYTHEMA [None]
  - INTENTIONAL OVERDOSE [None]
  - MULTIPLE SCLEROSIS RELAPSE [None]
  - NAUSEA [None]
  - SUICIDAL IDEATION [None]
